FAERS Safety Report 17730797 (Version 1)
Quarter: 2020Q2

REPORT INFORMATION
  Report Type: Spontaneous
  Country: FR (occurrence: FR)
  Receive Date: 20200430
  Receipt Date: 20200430
  Transmission Date: 20200714
  Serious: Yes (Hospitalization)
  Sender: FDA-Public Use
  Company Number: FR-MYLANLABS-2020M1042548

PATIENT
  Age: 82 Year
  Sex: Male
  Weight: 70 kg

DRUGS (4)
  1. AVASTIN [Suspect]
     Active Substance: BEVACIZUMAB
     Indication: NEUROENDOCRINE CARCINOMA
     Dosage: 345 MILLIGRAM, TOTAL
     Route: 041
     Dates: start: 20200221, end: 20200221
  2. LEVOFOLINATE [Suspect]
     Active Substance: LEVOLEUCOVORIN CALCIUM
     Indication: NEUROENDOCRINE CARCINOMA
     Dosage: 200 MILLIGRAM/SQ. METER, TOTAL
     Route: 041
     Dates: start: 20200221, end: 20200221
  3. IRINOTECAN [Suspect]
     Active Substance: IRINOTECAN
     Indication: NEUROENDOCRINE CARCINOMA
     Dosage: 180 MILLIGRAM/SQ. METER, TOTAL
     Route: 041
     Dates: start: 20200221, end: 20200221
  4. FLUOROURACILE [Suspect]
     Active Substance: FLUOROURACIL
     Indication: NEUROENDOCRINE CARCINOMA
     Dosage: 2800 MILLIGRAM/SQ. METER, TOTAL
     Route: 041
     Dates: start: 20200221, end: 20200221

REACTIONS (2)
  - Eastern Cooperative Oncology Group performance status worsened [Not Recovered/Not Resolved]
  - Urinary tract infection [Not Recovered/Not Resolved]

NARRATIVE: CASE EVENT DATE: 20200228
